FAERS Safety Report 7428874-0 (Version None)
Quarter: 2011Q2

REPORT INFORMATION
  Report Type: 
  Country: None (occurrence: None)
  Receive Date: 20110413
  Receipt Date: 20110329
  Transmission Date: 20111010
  Serious: Yes (Hospitalization)
  Sender: FDA-Public Use
  Company Number: 029036

PATIENT
  Sex: Female
  Weight: 49.7 kg

DRUGS (2)
  1. LACOSAMIDE [Suspect]
     Indication: EPILEPSY
     Dosage: 500 MG ORAL
     Route: 048
     Dates: start: 20100428
  2. LACOSAMIDE [Suspect]

REACTIONS (2)
  - HEART RATE DECREASED [None]
  - ASTHENIA [None]
